FAERS Safety Report 16159386 (Version 1)
Quarter: 2019Q2

REPORT INFORMATION
  Report Type: Report from Study
  Country: TZ (occurrence: TZ)
  Receive Date: 20190404
  Receipt Date: 20190404
  Transmission Date: 20190711
  Serious: Yes (Other)
  Sender: FDA-Public Use
  Company Number: TZ-PFIZER INC-2019143175

PATIENT

DRUGS (5)
  1. FLUCONAZOLE. [Suspect]
     Active Substance: FLUCONAZOLE
     Indication: MENINGITIS CRYPTOCOCCAL
     Dosage: 1200 MG, DAILY (INDUCTION TREATMENT)
  2. FLUCONAZOLE. [Suspect]
     Active Substance: FLUCONAZOLE
     Dosage: 800 MG, DAILY (CONSOLIDATION PHASE)
  3. SERTRALINE HCL [Suspect]
     Active Substance: SERTRALINE HYDROCHLORIDE
     Dosage: 200 MG, DAILY (CONSOLIDATION PHASE)
  4. AMPHOTERICIN B DEOXYCHOLATE [Suspect]
     Active Substance: AMPHOTERICIN B
     Indication: MENINGITIS CRYPTOCOCCAL
     Dosage: UNK (INDUCTION TREATMENT)
  5. SERTRALINE HCL [Suspect]
     Active Substance: SERTRALINE HYDROCHLORIDE
     Indication: MENINGITIS CRYPTOCOCCAL
     Dosage: 400 MG, DAILY (INDUCTION TREATMENT)

REACTIONS (1)
  - Hypokalaemia [Unknown]
